FAERS Safety Report 7683627-3 (Version None)
Quarter: 2011Q3

REPORT INFORMATION
  Report Type: 
  Country: None (occurrence: None)
  Receive Date: 20110809
  Receipt Date: 20110713
  Transmission Date: 20111222
  Serious: Yes (Other)
  Sender: FDA-Public Use
  Company Number: 2011028634

PATIENT
  Age: 78 Year
  Sex: Female
  Weight: 95.2554 kg

DRUGS (42)
  1. PRINIVIL [Concomitant]
  2. XANAX [Concomitant]
  3. HYDROCODONE-HOMATROPIN SYRUP (HYDROCODON W/HOMATROPINE) [Concomitant]
  4. FOLIC ACID [Concomitant]
  5. XOPENEX [Concomitant]
  6. POLY-IRON (POLYSACCHARIDE-IRON COMPLEX) [Concomitant]
  7. HIZENTRA [Suspect]
     Indication: IMMUNODEFICIENCY COMMON VARIABLE
     Dosage: SEE IMAGE
     Route: 058
     Dates: start: 20110502
  8. HIZENTRA [Suspect]
     Indication: IMMUNODEFICIENCY COMMON VARIABLE
     Dosage: SEE IMAGE
     Route: 058
     Dates: start: 20110710
  9. HIZENTRA [Suspect]
     Indication: IMMUNODEFICIENCY COMMON VARIABLE
     Dosage: SEE IMAGE
     Route: 058
     Dates: start: 20110710
  10. HIZENTRA [Suspect]
     Indication: IMMUNODEFICIENCY COMMON VARIABLE
     Dosage: SEE IMAGE
     Route: 058
     Dates: start: 20110502
  11. HYZAAR 50 (HYDROCHLOROTHIAZIDE W/LOSARTAN) [Concomitant]
  12. PRILOSEC DR (OMEPRAZOLE) [Concomitant]
  13. ACETAMINOPHEN [Concomitant]
  14. MULTIVITAMIN (DAILY MULTIVITAMIN) [Concomitant]
  15. BONIVA [Concomitant]
  16. ARANESP [Concomitant]
  17. CALCIUM CARBONATE [Concomitant]
  18. LOVAZA [Concomitant]
  19. DIFLUCAN [Concomitant]
  20. LEXAPRO [Concomitant]
  21. MUCINEX [Concomitant]
  22. HIZENTRA [Suspect]
  23. VICODIN [Concomitant]
  24. ASPIRIN [Concomitant]
  25. METHOTREXATE [Concomitant]
  26. KEFLEX [Concomitant]
  27. HIZENTRA [Suspect]
  28. PLAQUENIL [Concomitant]
  29. CATAPRES-TTS-1 [Concomitant]
  30. SPIRIVA [Concomitant]
  31. PROCHLORPERAZINE MALEATE [Concomitant]
  32. PREDNISONE [Concomitant]
  33. ONDANSETRON HCL (ONDANSETRON) [Concomitant]
  34. OXYGEN (OXYGEN) [Concomitant]
  35. COZAAR [Concomitant]
  36. HIZENTRA [Suspect]
  37. CIPRO [Concomitant]
  38. PYRIDIUM (PHENAZOPYRIDINE HYDROCHLORIDE) [Concomitant]
  39. MIRALAX [Concomitant]
  40. ACIDOPHILUS (LACTOBACILLUS ACIDOPHILUS) [Concomitant]
  41. COLACE (DOCUSATE SODIUM) [Concomitant]
  42. ARANESP [Concomitant]

REACTIONS (8)
  - NAUSEA [None]
  - FATIGUE [None]
  - VOMITING [None]
  - ELECTROLYTE IMBALANCE [None]
  - OXYGEN SATURATION DECREASED [None]
  - HEADACHE [None]
  - HEART RATE INCREASED [None]
  - BLOOD PRESSURE SYSTOLIC INCREASED [None]
